FAERS Safety Report 13738787 (Version 1)
Quarter: 2017Q3

REPORT INFORMATION
  Report Type: Report from Study
  Country: US (occurrence: US)
  Receive Date: 20170710
  Receipt Date: 20170710
  Transmission Date: 20171127
  Serious: No
  Sender: FDA-Public Use
  Company Number: US-SAOL THERAPEUTICS-2017SAO00629

PATIENT
  Age: 73 Year
  Sex: Female

DRUGS (8)
  1. BACLOFEN. [Suspect]
     Active Substance: BACLOFEN
     Dosage: 72.43 ?G, \DAY
     Route: 037
     Dates: start: 20131207
  2. BUPIVACAINE. [Suspect]
     Active Substance: BUPIVACAINE
     Dosage: 14.486 MG, \DAY
     Route: 037
     Dates: start: 20131207
  3. BACLOFEN. [Suspect]
     Active Substance: BACLOFEN
     Dosage: 130.83 ?G, \DAY
     Route: 037
     Dates: start: 20131207
  4. DILAUDID [Suspect]
     Active Substance: HYDROMORPHONE HYDROCHLORIDE
     Dosage: 1.7444 MG, \DAY
     Route: 037
     Dates: start: 20131207
  5. BUPIVACAINE. [Suspect]
     Active Substance: BUPIVACAINE
     Dosage: 26.167 MG, \DAY
     Route: 037
     Dates: start: 20131207
  6. CLONIDINE. [Suspect]
     Active Substance: CLONIDINE
     Dosage: 130.83 ?G, \DAY
     Route: 037
     Dates: start: 20131207
  7. DILAUDID [Suspect]
     Active Substance: HYDROMORPHONE HYDROCHLORIDE
     Dosage: 0.9657MG, \DAY
     Route: 037
     Dates: start: 20131207
  8. CLONIDINE. [Suspect]
     Active Substance: CLONIDINE
     Dosage: 72.43 ?G, \DAY
     Route: 037
     Dates: start: 20131207

REACTIONS (1)
  - Sedation [Unknown]

NARRATIVE: CASE EVENT DATE: 20131207
